FAERS Safety Report 10075588 (Version 1)
Quarter: 2014Q2

REPORT INFORMATION
  Report Type: Spontaneous
  Country: US (occurrence: None)
  Receive Date: 20140411
  Receipt Date: 20140411
  Transmission Date: 20141212
  Serious: Yes (Other)
  Sender: FDA-Public Use
  Company Number: None

PATIENT
  Age: 76 Year
  Sex: Female

DRUGS (11)
  1. ENBREL [Suspect]
     Indication: RHEUMATOID ARTHRITIS
     Dates: start: 20140213
  2. PREDNISONE [Concomitant]
  3. XARELTO [Concomitant]
  4. LYRICA [Concomitant]
  5. DEXILANT [Concomitant]
  6. METOPROLOL [Concomitant]
  7. AMLODIPINE [Concomitant]
  8. FOLBIC [Concomitant]
  9. FOLIC ACID [Concomitant]
  10. VIT D [Concomitant]
  11. METHOTREXATE [Concomitant]

REACTIONS (1)
  - Cardiac flutter [None]
